FAERS Safety Report 14598863 (Version 1)
Quarter: 2018Q1

REPORT INFORMATION
  Report Type: Spontaneous
  Country: CN (occurrence: CN)
  Receive Date: 20180305
  Receipt Date: 20180305
  Transmission Date: 20180509
  Serious: Yes (Hospitalization, Other)
  Sender: FDA-Public Use
  Company Number: CN-PFIZER INC-2018089822

PATIENT
  Age: 87 Year
  Sex: Male
  Weight: 55 kg

DRUGS (4)
  1. ORNIDAZOLE [Concomitant]
     Active Substance: ORNIDAZOLE
     Dosage: UNK
  2. SODIUM CHLORIDE. [Concomitant]
     Active Substance: SODIUM CHLORIDE
     Dosage: 500 MG, 2X/DAY
     Route: 041
     Dates: start: 20180112, end: 20180113
  3. TYGACIL [Suspect]
     Active Substance: TIGECYCLINE
     Indication: ABDOMINAL INFECTION
     Dosage: 50 UG, 2X/DAY
     Route: 041
     Dates: start: 20180112, end: 20180113
  4. DIFLUCAN [Suspect]
     Active Substance: FLUCONAZOLE
     Indication: PNEUMONIA FUNGAL
     Dosage: 0.2 G, 1X/DAY
     Route: 041
     Dates: start: 20180112, end: 20180118

REACTIONS (2)
  - Rash generalised [Not Recovered/Not Resolved]
  - Dermatitis exfoliative [Not Recovered/Not Resolved]

NARRATIVE: CASE EVENT DATE: 20180114
